FAERS Safety Report 21701556 (Version 2)
Quarter: 2022Q4

REPORT INFORMATION
  Report Type: Spontaneous
  Country: BR (occurrence: BR)
  Receive Date: 20221208
  Receipt Date: 20221219
  Transmission Date: 20230113
  Serious: Yes (Death)
  Sender: FDA-Public Use
  Company Number: BR-TEVA BRAZIL-2022-BR-2833160

PATIENT
  Sex: Male

DRUGS (1)
  1. FENTANYL [Suspect]
     Active Substance: FENTANYL
     Indication: Substance abuse
     Route: 065

REACTIONS (2)
  - Respiratory depression [Fatal]
  - Drug abuse [Fatal]
